FAERS Safety Report 5952043-4 (Version None)
Quarter: 2008Q4

REPORT INFORMATION
  Report Type: 
  Country: None (occurrence: None)
  Receive Date: 20081113
  Receipt Date: 20080114
  Transmission Date: 20090506
  Serious: No
  Sender: FDA-Public Use
  Company Number: A0703031A

PATIENT
  Age: 84 Year
  Sex: Female

DRUGS (5)
  1. COREG [Suspect]
     Dosage: 6.25MG TWICE PER DAY
     Route: 048
     Dates: start: 19990101
  2. LISINOPRIL [Concomitant]
  3. LASIX [Concomitant]
  4. IRON SUPPLEMENT [Concomitant]
  5. ZOCOR [Concomitant]

REACTIONS (1)
  - URINE ODOUR ABNORMAL [None]
